FAERS Safety Report 11337103 (Version 3)
Quarter: 2016Q1

REPORT INFORMATION
  Report Type: Report from Study
  Country: US (occurrence: US)
  Receive Date: 20150804
  Receipt Date: 20160128
  Transmission Date: 20160525
  Serious: Yes (Other)
  Sender: FDA-Public Use
  Company Number: PHEH2015US011832

PATIENT
  Age: 29 Year
  Sex: Female
  Weight: 61.22 kg

DRUGS (5)
  1. ILARIS [Suspect]
     Active Substance: CANAKINUMAB
     Indication: JUVENILE IDIOPATHIC ARTHRITIS
     Dosage: 240 MG, QW4
     Route: 058
     Dates: start: 20150615
  2. MERIDIA [Suspect]
     Active Substance: SIBUTRAMINE HYDROCHLORIDE
     Indication: CONTRACEPTION
     Route: 065
  3. FERROUS SULFATE [Concomitant]
     Active Substance: FERROUS SULFATE\FERROUS SULFATE, DRIED
     Indication: ANAEMIA
     Dosage: 325 MG, TID
     Route: 048
     Dates: start: 1994
  4. ILARIS [Suspect]
     Active Substance: CANAKINUMAB
     Dosage: 240 MG, QW4
     Route: 058
     Dates: start: 20151218
  5. ILARIS [Suspect]
     Active Substance: CANAKINUMAB
     Dosage: 240 MG, QW4
     Route: 058
     Dates: start: 20150727

REACTIONS (10)
  - Tachycardia [Recovered/Resolved]
  - Wheezing [Recovering/Resolving]
  - Headache [Recovered/Resolved]
  - Urinary tract infection [Recovered/Resolved]
  - Fatigue [Unknown]
  - Productive cough [Unknown]
  - Dysuria [Unknown]
  - Rales [Recovering/Resolving]
  - Diarrhoea [Unknown]
  - Cough [Recovering/Resolving]

NARRATIVE: CASE EVENT DATE: 20150616
